FAERS Safety Report 15620250 (Version 1)
Quarter: 2018Q4

REPORT INFORMATION
  Report Type: Spontaneous
  Country: US (occurrence: US)
  Receive Date: 20181115
  Receipt Date: 20181115
  Transmission Date: 20190205
  Serious: No
  Sender: FDA-Public Use
  Company Number: US-BAUSCH-BL-2017-035078

PATIENT
  Age: 78 Year
  Sex: Female

DRUGS (2)
  1. ATIVAN [Suspect]
     Active Substance: LORAZEPAM
     Indication: INSOMNIA
     Dosage: 1 TO 2 TABLETS BY MOUTH, 3 TO 4 TIMES A DAY
     Route: 048
     Dates: start: 201709, end: 201711
  2. ATIVAN [Suspect]
     Active Substance: LORAZEPAM
     Dosage: 1 TO 2 TABLETS BY MOUTH, 3 TO 4 TIMES A DAY?01/NOV/2017 OR 02/NOV/2017.
     Route: 048
     Dates: start: 201711, end: 201711

REACTIONS (3)
  - Abdominal pain upper [Recovered/Resolved]
  - Drug ineffective [Recovered/Resolved]
  - Gastrointestinal pain [Recovered/Resolved]

NARRATIVE: CASE EVENT DATE: 201709
